FAERS Safety Report 10037319 (Version 1)
Quarter: 2014Q1

REPORT INFORMATION
  Report Type: Spontaneous
  Country: US (occurrence: None)
  Receive Date: 20140306
  Receipt Date: 20140306
  Transmission Date: 20141002
  Serious: Yes (Hospitalization)
  Sender: FDA-Public Use
  Company Number: 163-21880-13063901

PATIENT
  Age: 72 Year
  Sex: Female

DRUGS (6)
  1. REVLIMID (LENALIDOMIDE) (25 MILLIGRAM, CAPSULES) [Suspect]
     Indication: PLASMA CELL MYELOMA
     Route: 048
     Dates: start: 20120327
  2. DEXAMETHASONE (DEXAMETHASONE) [Concomitant]
  3. CALCIUM 500 +D (OS-CAL) [Concomitant]
  4. VITAMIN D3 (COLECALCIFEROL) [Concomitant]
  5. LORAZEPAM (LORAZEPAM) [Concomitant]
  6. PROCHLORPERAZINE (PROCHLORPERAZINE) [Concomitant]

REACTIONS (2)
  - Anaemia [None]
  - Loss of consciousness [None]
